FAERS Safety Report 7075167-X (Version None)
Quarter: 2010Q4

REPORT INFORMATION
  Report Type: 
  Country: None (occurrence: None)
  Receive Date: 20101029
  Receipt Date: 20100505
  Transmission Date: 20110411
  Serious: No
  Sender: FDA-Public Use
  Company Number: US-WYE-H15107310

PATIENT
  Sex: Female

DRUGS (2)
  1. ALAVERT [Suspect]
     Route: 048
     Dates: start: 20100505
  2. ALAVERT [Suspect]
     Route: 048
     Dates: start: 20100505, end: 20100505

REACTIONS (4)
  - ACCIDENTAL OVERDOSE [None]
  - INAPPROPRIATE SCHEDULE OF DRUG ADMINISTRATION [None]
  - INSOMNIA [None]
  - SOMNOLENCE [None]
